FAERS Safety Report 9972325 (Version 1)
Quarter: 2014Q1

REPORT INFORMATION
  Report Type: Spontaneous
  Country: US (occurrence: None)
  Receive Date: 20140305
  Receipt Date: 20140305
  Transmission Date: 20141002
  Serious: Yes (Other)
  Sender: FDA-Public Use
  Company Number: None

PATIENT
  Sex: Male

DRUGS (2)
  1. COMBIVIR [Suspect]
     Indication: HIV INFECTION
     Dates: start: 20070101, end: 20100102
  2. REYATAZ [Suspect]
     Indication: HIV INFECTION

REACTIONS (5)
  - Abdominal discomfort [None]
  - Diarrhoea [None]
  - Abdominal distension [None]
  - Flatulence [None]
  - Rash [None]
